FAERS Safety Report 14265182 (Version 2)
Quarter: 2018Q1

REPORT INFORMATION
  Report Type: Spontaneous
  Country: JO (occurrence: JO)
  Receive Date: 20171208
  Receipt Date: 20180116
  Transmission Date: 20180508
  Serious: Yes (Hospitalization, Other)
  Sender: FDA-Public Use
  Company Number: JO-GLAXOSMITHKLINE-JO2017GSK187119

PATIENT
  Age: 60 Year
  Sex: Male

DRUGS (1)
  1. ZINNAT [Suspect]
     Active Substance: CEFUROXIME AXETIL
     Indication: PHARYNGITIS
     Dosage: 500 MG, BID
     Route: 048
     Dates: start: 20171202, end: 20171202

REACTIONS (3)
  - Hypotension [Recovered/Resolved]
  - Choking [Recovered/Resolved]
  - Hyperhidrosis [Recovered/Resolved]

NARRATIVE: CASE EVENT DATE: 20171202
